FAERS Safety Report 26064882 (Version 2)
Quarter: 2025Q4

REPORT INFORMATION
  Report Type: Spontaneous
  Country: JP (occurrence: JP)
  Receive Date: 20251119
  Receipt Date: 20251128
  Transmission Date: 20260118
  Serious: No
  Sender: NOVARTIS
  Company Number: JP-002147023-NVSJ2024JP014140

PATIENT
  Age: 36 Year
  Sex: Female

DRUGS (1)
  1. KESIMPTA [Suspect]
     Active Substance: OFATUMUMAB
     Indication: Multiple sclerosis
     Dosage: 20 MG, Q4W MAINTENANCE
     Route: 058

REACTIONS (2)
  - Palmoplantar pustulosis [Recovered/Resolved]
  - Concomitant disease aggravated [Recovered/Resolved]
